FAERS Safety Report 9208215 (Version 2)
Quarter: 2013Q2

REPORT INFORMATION
  Report Type: Spontaneous
  Country: US (occurrence: US)
  Receive Date: 20130403
  Receipt Date: 20130419
  Transmission Date: 20140414
  Serious: No
  Sender: FDA-Public Use
  Company Number: US-TEVA-392207USA

PATIENT
  Age: 67 Year
  Sex: Female
  Weight: 108.96 kg

DRUGS (1)
  1. PROAIR HFA [Suspect]
     Indication: DYSPNOEA
     Dosage: VARIES
     Route: 055
     Dates: start: 20130312

REACTIONS (1)
  - Anosmia [Recovered/Resolved]
